FAERS Safety Report 9535629 (Version 2)
Quarter: 2013Q4

REPORT INFORMATION
  Report Type: Report from Study
  Country: BR (occurrence: BR)
  Receive Date: 20130919
  Receipt Date: 20131018
  Transmission Date: 20140711
  Serious: Yes (Hospitalization)
  Sender: FDA-Public Use
  Company Number: BR-ROCHE-1277822

PATIENT
  Sex: Female
  Weight: 75 kg

DRUGS (8)
  1. XOLAIR [Suspect]
     Indication: LUNG DISORDER
     Dosage: A LAST APPLICATION OF OMALIZUMAB ON 16 AUG 2013; DOSE: 150 MG SUBCUTANEOUSLY OR ANOTHER THING AND FO
     Route: 058
  2. XOLAIR [Suspect]
     Indication: HYPERSENSITIVITY
     Dosage: 1 AMPOULE, HALF IN EACH ARM
     Route: 065
  3. GLIMEPIRIDE [Concomitant]
  4. METFORMIN [Concomitant]
  5. NEXIAM [Concomitant]
  6. DIGESAN [Concomitant]
  7. ATORVASTATIN [Concomitant]
  8. SUMATRIPTAN [Concomitant]

REACTIONS (4)
  - Bronchopneumonia [Recovering/Resolving]
  - Pleural effusion [Recovering/Resolving]
  - Anaemia [Recovering/Resolving]
  - Haemorrhage [Recovering/Resolving]
